FAERS Safety Report 20778951 (Version 1)
Quarter: 2022Q2

REPORT INFORMATION
  Report Type: Spontaneous
  Country: US (occurrence: US)
  Receive Date: 20220503
  Receipt Date: 20220503
  Transmission Date: 20220720
  Serious: No
  Sender: FDA-Public Use
  Company Number: US-LUNDBECK-DKLU3047461

PATIENT
  Age: 30 Year
  Sex: Female

DRUGS (1)
  1. NORTHERA [Suspect]
     Active Substance: DROXIDOPA
     Indication: Hypotension
     Route: 048

REACTIONS (3)
  - Headache [Unknown]
  - Movement disorder [Unknown]
  - Product dose omission issue [Unknown]
